FAERS Safety Report 7554800-X (Version None)
Quarter: 2011Q2

REPORT INFORMATION
  Report Type: 
  Country: None (occurrence: None)
  Receive Date: 20110617
  Receipt Date: 20110610
  Transmission Date: 20111010
  Serious: Yes (Congenital Anomaly)
  Sender: FDA-Public Use
  Company Number: DE-JNJFOC-20110507617

PATIENT
  Sex: Male
  Weight: 3.18 kg

DRUGS (1)
  1. TOPIRAMATE [Suspect]
     Indication: DRUG EXPOSURE DURING PREGNANCY
     Dosage: 2X50 MG
     Route: 064

REACTIONS (3)
  - ATRIAL SEPTAL DEFECT [None]
  - CLEFT LIP [None]
  - HYPERTELORISM OF ORBIT [None]
